FAERS Safety Report 15105129 (Version 1)
Quarter: 2018Q3

REPORT INFORMATION
  Report Type: Spontaneous
  Country: AU (occurrence: AU)
  Receive Date: 20180704
  Receipt Date: 20180704
  Transmission Date: 20181010
  Serious: Yes (Other)
  Sender: FDA-Public Use
  Company Number: AU-ALEMBIC PHARMACUETICALS LIMITED-2018SCAL000465

PATIENT

DRUGS (1)
  1. METOPROLOL TARTRATE. [Suspect]
     Active Substance: METOPROLOL TARTRATE
     Indication: PRODUCT USED FOR UNKNOWN INDICATION
     Dosage: 75 MILLIGRAM

REACTIONS (3)
  - Heart rate decreased [Unknown]
  - Blood pressure systolic decreased [Unknown]
  - Cardiotoxicity [Unknown]
